FAERS Safety Report 10365610 (Version 1)
Quarter: 2014Q3

REPORT INFORMATION
  Report Type: Spontaneous
  Country: GB (occurrence: GB)
  Receive Date: 20140806
  Receipt Date: 20140806
  Transmission Date: 20150326
  Serious: Yes (Hospitalization)
  Sender: FDA-Public Use
  Company Number: GB-PFIZER INC-2014215852

PATIENT
  Age: 38 Year

DRUGS (4)
  1. FOSTER [Concomitant]
     Active Substance: BECLOMETHASONE\FORMOTEROL
     Dosage: 1P BD100MICROGRAMS/DOSE/6MICROGRAMS/DOSE
     Route: 055
  2. OLANZAPINE. [Concomitant]
     Active Substance: OLANZAPINE
     Dosage: TAKEN AT NIGHT
  3. SALBUTAMOL [Concomitant]
     Active Substance: ALBUTEROL
     Dosage: 100MG, METERED-DOSE INHALER
     Route: 055
  4. IBUPROFEN. [Suspect]
     Active Substance: IBUPROFEN
     Dosage: UNK

REACTIONS (1)
  - Dyspnoea [Unknown]
